FAERS Safety Report 17064835 (Version 1)
Quarter: 2019Q4

REPORT INFORMATION
  Report Type: Spontaneous
  Country: US (occurrence: US)
  Receive Date: 20191024
  Receipt Date: 20191024
  Transmission Date: 20200122
  Serious: No
  Sender: FDA-Public Use
  Company Number: None

PATIENT
  Age: 67 Year
  Sex: Male

DRUGS (1)
  1. MEKINIST [Suspect]
     Active Substance: TRAMETINIB DIMETHYL SULFOXIDE
     Dosage: ?          OTHER DOSE:0.5;?
     Route: 048
     Dates: start: 20191001

REACTIONS (2)
  - Pyrexia [None]
  - Heart rate decreased [None]

NARRATIVE: CASE EVENT DATE: 20191015
